FAERS Safety Report 20320426 (Version 6)
Quarter: 2022Q2

REPORT INFORMATION
  Report Type: Spontaneous
  Country: US (occurrence: US)
  Receive Date: 20220111
  Receipt Date: 20220427
  Transmission Date: 20220721
  Serious: Yes (Other)
  Sender: FDA-Public Use
  Company Number: US-GLAXOSMITHKLINE-US2022AMR003797

PATIENT
  Age: 54 Year
  Sex: Female

DRUGS (4)
  1. ZEJULA [Suspect]
     Active Substance: NIRAPARIB
     Indication: Ovarian cancer
     Dosage: 200 MG, QD
     Dates: start: 20220105
  2. ZEJULA [Suspect]
     Active Substance: NIRAPARIB
     Dosage: 200 MG, QD
     Dates: start: 20220120, end: 20220318
  3. ZEJULA [Suspect]
     Active Substance: NIRAPARIB
     Dosage: 100 MG, QD
     Dates: start: 20220408
  4. IRON [Concomitant]
     Active Substance: IRON
     Indication: Product used for unknown indication
     Dosage: UNK (2 INFUSIONS)
     Route: 042
     Dates: start: 202202

REACTIONS (13)
  - Thrombosis [Unknown]
  - Insomnia [Unknown]
  - Back pain [Unknown]
  - Hepatic enzyme increased [Not Recovered/Not Resolved]
  - Nausea [Unknown]
  - Abdominal pain upper [Unknown]
  - Hypertension [Unknown]
  - Pain in extremity [Unknown]
  - Peripheral swelling [Unknown]
  - Carbohydrate antigen 125 increased [Not Recovered/Not Resolved]
  - Platelet count decreased [Unknown]
  - Anaemia [Unknown]
  - Product dose omission issue [Unknown]

NARRATIVE: CASE EVENT DATE: 20220101
